FAERS Safety Report 5698259-6 (Version None)
Quarter: 2008Q2

REPORT INFORMATION
  Report Type: 
  Country: None (occurrence: None)
  Receive Date: 20080408
  Receipt Date: 20080327
  Transmission Date: 20081010
  Serious: Yes (Other)
  Sender: FDA-Public Use
  Company Number: US-PFIZER INC-2008027843

PATIENT
  Sex: Female
  Weight: 82.1 kg

DRUGS (4)
  1. CHANTIX [Suspect]
     Indication: SMOKING CESSATION THERAPY
     Route: 048
     Dates: start: 20080123, end: 20080317
  2. ATENOLOL [Concomitant]
  3. SIMVASTATIN [Concomitant]
  4. ZOCOR [Concomitant]

REACTIONS (8)
  - ACTIVITIES OF DAILY LIVING IMPAIRED [None]
  - AGITATION [None]
  - ANXIETY [None]
  - DEPRESSION [None]
  - FEELING ABNORMAL [None]
  - HYPERTENSION [None]
  - SUICIDAL IDEATION [None]
  - WEIGHT INCREASED [None]
